FAERS Safety Report 11391758 (Version 1)
Quarter: 2015Q3

REPORT INFORMATION
  Report Type: Spontaneous
  Country: US (occurrence: None)
  Receive Date: 20150814
  Receipt Date: 20150814
  Transmission Date: 20151125
  Serious: Yes (Disabling, Other)
  Sender: FDA-Public Use
  Company Number: None

PATIENT
  Age: 42 Year
  Sex: Female
  Weight: 53.07 kg

DRUGS (2)
  1. MULTIVITAMIN [Concomitant]
     Active Substance: VITAMINS
  2. TIZANIDINE. [Suspect]
     Active Substance: TIZANIDINE
     Indication: CERVICAL RADICULOPATHY
     Route: 048
     Dates: start: 20150526, end: 20150528

REACTIONS (3)
  - Retinal tear [None]
  - Vitreous haemorrhage [None]
  - Retinal detachment [None]

NARRATIVE: CASE EVENT DATE: 20150529
